FAERS Safety Report 4590205-1 (Version None)
Quarter: 2005Q1

REPORT INFORMATION
  Report Type: 
  Country: None (occurrence: None)
  Receive Date: 20050224
  Receipt Date: 20050202
  Transmission Date: 20050727
  Serious: Yes (Death, Hospitalization, Other)
  Sender: FDA-Public Use
  Company Number: JP-BRISTOL-MYERS SQUIBB COMPANY-12848420

PATIENT
  Age: 70 Year
  Sex: Male

DRUGS (10)
  1. TAXOL [Suspect]
     Indication: LUNG NEOPLASM MALIGNANT
     Route: 041
     Dates: start: 20040701, end: 20040701
  2. PARAPLATIN [Suspect]
     Indication: LUNG NEOPLASM MALIGNANT
     Route: 041
     Dates: start: 20040701, end: 20040701
  3. VENA [Suspect]
     Indication: PREMEDICATION
     Route: 048
     Dates: start: 20040701, end: 20040701
  4. PELTAZON [Suspect]
     Indication: CANCER PAIN
     Route: 048
     Dates: start: 20040616, end: 20040707
  5. DECADRON [Concomitant]
     Route: 041
     Dates: start: 20040701, end: 20040701
  6. GASTER [Concomitant]
     Route: 041
     Dates: start: 20040701, end: 20040701
  7. GASTER D [Concomitant]
     Route: 048
     Dates: start: 20040616, end: 20040707
  8. ZOFRAN [Concomitant]
     Route: 042
     Dates: start: 20040701, end: 20040701
  9. GANATON [Concomitant]
     Route: 048
     Dates: start: 20040701, end: 20040701
  10. NASEA [Concomitant]
     Route: 048
     Dates: start: 20040701, end: 20040701

REACTIONS (7)
  - BONE MARROW DEPRESSION [None]
  - DELIRIUM [None]
  - HAEMOGLOBIN DECREASED [None]
  - PANCYTOPENIA [None]
  - PLATELET COUNT DECREASED [None]
  - PYREXIA [None]
  - WHITE BLOOD CELL COUNT DECREASED [None]
